FAERS Safety Report 7004113-X (Version None)
Quarter: 2010Q3

REPORT INFORMATION
  Report Type: 
  Country: None (occurrence: None)
  Receive Date: 20100920
  Receipt Date: 20100203
  Transmission Date: 20110219
  Serious: No
  Sender: FDA-Public Use
  Company Number: US-WYE-H13476010

PATIENT
  Sex: Male
  Weight: 103.06 kg

DRUGS (3)
  1. PRISTIQ [Suspect]
     Indication: ASTHENIA
     Route: 048
     Dates: start: 20090801
  2. AMBIEN [Concomitant]
  3. SIMVASTATIN [Concomitant]

REACTIONS (3)
  - DIZZINESS [None]
  - DRUG INEFFECTIVE FOR UNAPPROVED INDICATION [None]
  - DRUG WITHDRAWAL SYNDROME [None]
